FAERS Safety Report 6485185-8 (Version None)
Quarter: 2009Q4

REPORT INFORMATION
  Report Type: 
  Country: None (occurrence: None)
  Receive Date: 20091209
  Receipt Date: 20090613
  Transmission Date: 20100525
  Serious: No
  Sender: FDA-Public Use
  Company Number: US-AMGEN-KDL351634

PATIENT
  Sex: Female

DRUGS (1)
  1. ENBREL [Suspect]
     Indication: JUVENILE ARTHRITIS
     Route: 058
     Dates: start: 20090516

REACTIONS (9)
  - CHEST DISCOMFORT [None]
  - COUGH [None]
  - DIZZINESS [None]
  - DYSPNOEA [None]
  - HYPOTENSION [None]
  - INJECTION SITE ERYTHEMA [None]
  - NAUSEA [None]
  - SOMNOLENCE [None]
  - TREMOR [None]
